FAERS Safety Report 25729881 (Version 1)
Quarter: 2025Q3

REPORT INFORMATION
  Report Type: Report from Study
  Country: US (occurrence: US)
  Receive Date: 20250827
  Receipt Date: 20250827
  Transmission Date: 20251020
  Serious: Yes (Other)
  Sender: ALEXION PHARMACEUTICALS
  Company Number: US-ASTRAZENECA-202508USA018113US

PATIENT
  Age: 62 Year
  Sex: Female

DRUGS (1)
  1. STRENSIQ [Suspect]
     Active Substance: ASFOTASE ALFA
     Indication: Phosphorus metabolism disorder
     Route: 065

REACTIONS (11)
  - Influenza like illness [Unknown]
  - Chills [Unknown]
  - Hyperhidrosis [Unknown]
  - Headache [Unknown]
  - Oropharyngeal pain [Unknown]
  - Pyrexia [Unknown]
  - Pain [Unknown]
  - Swelling of eyelid [Unknown]
  - Peripheral swelling [Unknown]
  - Joint swelling [Unknown]
  - Swelling face [Unknown]

NARRATIVE: CASE EVENT DATE: 20250813
